FAERS Safety Report 6549234-0 (Version None)
Quarter: 2010Q1

REPORT INFORMATION
  Report Type: 
  Country: None (occurrence: None)
  Receive Date: 20100125
  Receipt Date: 20100115
  Transmission Date: 20100710
  Serious: Yes (Other)
  Sender: FDA-Public Use
  Company Number: NL-ASTRAZENECA-2010SE02007

PATIENT
  Sex: Female

DRUGS (5)
  1. SELOKEEN ZOK [Suspect]
     Indication: ACUTE MYOCARDIAL INFARCTION
     Route: 048
  2. LIPITOR [Concomitant]
  3. PLAVIX [Concomitant]
  4. CARDIO 80 [Concomitant]
  5. COVESIL [Concomitant]

REACTIONS (4)
  - ARTHRALGIA [None]
  - FATIGUE [None]
  - MYOCARDIAL INFARCTION [None]
  - WEIGHT INCREASED [None]
